FAERS Safety Report 10552541 (Version 4)
Quarter: 2018Q4

REPORT INFORMATION
  Report Type: Spontaneous
  Country: SK (occurrence: SK)
  Receive Date: 20141029
  Receipt Date: 20181109
  Transmission Date: 20190204
  Serious: Yes (Hospitalization, Disabling, Other)
  Sender: FDA-Public Use
  Company Number: SK-PFIZER INC-2014291828

PATIENT
  Age: 60 Year
  Sex: Male

DRUGS (1)
  1. IBUPROFEN. [Suspect]
     Active Substance: IBUPROFEN
     Indication: PAIN
     Dosage: 4000 MG, DAILY (10X400 MG) FOR 4 WEEKS (DAILY 10 TABLETS)

REACTIONS (8)
  - Melaena [Unknown]
  - Renal impairment [Unknown]
  - Duodenitis [Unknown]
  - Overdose [Unknown]
  - Gastrooesophageal reflux disease [Unknown]
  - Abdominal pain upper [Unknown]
  - Vomiting [Unknown]
  - Normocytic anaemia [Unknown]
